FAERS Safety Report 4446233-X (Version None)
Quarter: 2004Q3

REPORT INFORMATION
  Report Type: 
  Country: None (occurrence: None)
  Receive Date: 20040902
  Receipt Date: 20030806
  Transmission Date: 20050211
  Serious: Yes (Hospitalization)
  Sender: FDA-Public Use
  Company Number: MK200308-0107-1

PATIENT
  Age: 57 Year
  Sex: Male

DRUGS (1)
  1. HEXABRIX [Suspect]
     Dosage: SINGLE USE
     Dates: start: 20030402, end: 20030402

REACTIONS (6)
  - ANAPHYLACTIC SHOCK [None]
  - BLOOD PRESSURE DECREASED [None]
  - BRONCHOSPASM [None]
  - CHEST PAIN [None]
  - CIRCULATORY COLLAPSE [None]
  - CONTRAST MEDIA REACTION [None]
